FAERS Safety Report 8458963-3 (Version None)
Quarter: 2012Q2

REPORT INFORMATION
  Report Type: 
  Country: None (occurrence: None)
  Receive Date: 20120622
  Receipt Date: 20120613
  Transmission Date: 20120825
  Serious: Yes (Other)
  Sender: FDA-Public Use
  Company Number: AU-ROCHE-1078272

PATIENT
  Sex: Male

DRUGS (10)
  1. TRITACE [Concomitant]
  2. LIPITOR [Concomitant]
     Dosage: TAKEN IN THE MORNING
  3. PLAQUENIL [Concomitant]
  4. METFORMIN HCL [Concomitant]
  5. CALCIUM CARBONATE [Concomitant]
  6. ACTEMRA [Suspect]
     Indication: RHEUMATOID ARTHRITIS
     Dosage: VOLUME OF INFUSION GIVEN: 40ML
     Route: 065
     Dates: start: 20110511
  7. WARFARIN SODIUM [Concomitant]
  8. OSTELIN [Concomitant]
  9. ASCORBIC ACID [Concomitant]
  10. METHOTREXATE [Concomitant]
     Dates: start: 20120424

REACTIONS (2)
  - FALL [None]
  - DIZZINESS [None]
